FAERS Safety Report 7482892-5 (Version None)
Quarter: 2011Q2

REPORT INFORMATION
  Report Type: 
  Country: None (occurrence: None)
  Receive Date: 20110516
  Receipt Date: 20100621
  Transmission Date: 20111010
  Serious: Yes (Other)
  Sender: FDA-Public Use
  Company Number: PHHY2010US33729

PATIENT
  Sex: Female
  Weight: 55.8 kg

DRUGS (19)
  1. PRED FORTE [Concomitant]
     Dosage: 1 DROP IN AFFECTED EYE, BID
  2. EPIPEN [Concomitant]
     Dosage: 0.3 MG, UNK
     Route: 030
     Dates: start: 20101016
  3. CALCIUM MAGNESIUM ZINC [Concomitant]
     Dosage: 2 TABLS. QHS
     Route: 048
     Dates: start: 20100630
  4. CORTISPORIN EYE OINTMENT [Concomitant]
     Dosage: 0.5 INCHES INTO LEFT EYE OD
  5. GLEEVEC [Suspect]
     Indication: GASTROINTESTINAL STROMAL TUMOUR
     Dosage: 400 MG/DAY
     Route: 048
     Dates: start: 20090811
  6. TRETINOIN [Concomitant]
     Dosage: UNK
     Dates: start: 20101027
  7. VITAMIN E [Concomitant]
     Dosage: 400 IU, BID
     Route: 048
     Dates: start: 20100630
  8. PRED-G [Concomitant]
     Dosage: 0.5 INTO RT.EYE TID
  9. PERCOCET [Concomitant]
     Indication: PAIN
     Dosage: 325 MG, Q4H
     Dates: start: 20100526
  10. MULTI-VIT [Concomitant]
     Dosage: 1 TAB DAILY
     Route: 048
     Dates: start: 20100630
  11. VICODIN [Concomitant]
     Indication: PAIN
     Dosage: 500 MG, EVERY 4-6 HOURS/DAY
     Route: 048
     Dates: start: 20100526
  12. VITAMIN D [Concomitant]
     Dosage: 400 U, TID
     Route: 048
  13. ADVIL LIQUI-GELS [Concomitant]
     Dosage: 100 MG, QID
     Route: 048
  14. GLEEVEC [Suspect]
     Dosage: 400MG/DAY
     Route: 048
     Dates: start: 20091127
  15. VITAMIN C [Concomitant]
     Dosage: 500 MG, BID
     Route: 048
     Dates: start: 20100630
  16. DIAMOX #1 [Concomitant]
     Dosage: 250 MG, BID
     Route: 048
     Dates: start: 20100526
  17. PRILOSEC [Concomitant]
     Dosage: 20 MG, 2 CAPS BEFORE BREAKFAST
     Route: 048
     Dates: start: 20101009
  18. COLACE [Concomitant]
     Dosage: 100 MG, QD
     Route: 048
     Dates: start: 20100707
  19. FISH OIL [Concomitant]
     Dosage: 1000 MG, TID

REACTIONS (20)
  - ABDOMINAL PAIN [None]
  - ABDOMINAL PAIN LOWER [None]
  - PELVIC PAIN [None]
  - COUGH [None]
  - EYE DISORDER [None]
  - NEUTROPENIA [None]
  - IRON DEFICIENCY [None]
  - PERIORBITAL OEDEMA [None]
  - GASTROOESOPHAGEAL REFLUX DISEASE [None]
  - LIVER FUNCTION TEST ABNORMAL [None]
  - ASPARTATE AMINOTRANSFERASE INCREASED [None]
  - WEIGHT INCREASED [None]
  - UPPER RESPIRATORY TRACT INFECTION [None]
  - PYREXIA [None]
  - FATIGUE [None]
  - NASOPHARYNGITIS [None]
  - ABDOMINAL PAIN UPPER [None]
  - NAUSEA [None]
  - ANAEMIA [None]
  - VOMITING [None]
